FAERS Safety Report 5171321-2 (Version None)
Quarter: 2006Q4

REPORT INFORMATION
  Report Type: 
  Country: None (occurrence: None)
  Receive Date: 20061213
  Receipt Date: 20051223
  Transmission Date: 20070319
  Serious: Yes (Hospitalization)
  Sender: FDA-Public Use
  Company Number: US-AMGEN-US162727

PATIENT
  Sex: Male

DRUGS (2)
  1. ENBREL [Suspect]
     Indication: RHEUMATOID ARTHRITIS
     Dates: start: 20040801, end: 20051220
  2. HYDROCODONE BITARTRATE + ACETAMINOPHEN [Concomitant]

REACTIONS (1)
  - MYELITIS TRANSVERSE [None]
